FAERS Safety Report 25890529 (Version 1)
Quarter: 2025Q4

REPORT INFORMATION
  Report Type: Spontaneous
  Country: US (occurrence: None)
  Receive Date: 20251006
  Receipt Date: 20251006
  Transmission Date: 20260117
  Serious: Yes (Life-Threatening, Hospitalization)
  Sender: FDA-CTU
  Company Number: None

PATIENT
  Age: 76 Year
  Sex: Female
  Weight: 74.7 kg

DRUGS (2)
  1. CEFTRIAXONE [Suspect]
     Active Substance: CEFTRIAXONE
     Indication: Pulmonary oedema
     Dosage: 1 GRM(S) ONCE A WEEK INTRAVENUS ?
     Route: 042
     Dates: start: 20250922, end: 20250922
  2. Aspirin chewable tablet 162 mg [Concomitant]
     Dates: start: 20250922, end: 20250922

REACTIONS (6)
  - Infusion related reaction [None]
  - Screaming [None]
  - Hypoxia [None]
  - Unresponsive to stimuli [None]
  - Pulse absent [None]
  - Anaphylactic reaction [None]

NARRATIVE: CASE EVENT DATE: 20250922
